FAERS Safety Report 19037502 (Version 1)
Quarter: 2021Q1

REPORT INFORMATION
  Report Type: Spontaneous
  Country: US (occurrence: US)
  Receive Date: 20210322
  Receipt Date: 20210322
  Transmission Date: 20210420
  Serious: No
  Sender: FDA-Public Use
  Company Number: None

PATIENT
  Age: 72 Year
  Sex: Female
  Weight: 108 kg

DRUGS (1)
  1. OZEMPIC [Suspect]
     Active Substance: SEMAGLUTIDE
     Indication: DIABETES MELLITUS
     Dosage: ?          OTHER FREQUENCY:ONCE A WEEK;OTHER ROUTE:SHOT UNDER THE SKIN?
     Route: 058
     Dates: start: 20200902, end: 20210312

REACTIONS (12)
  - Malaise [None]
  - Diarrhoea [None]
  - Vertigo [None]
  - Abdominal pain upper [None]
  - Dysuria [None]
  - Muscle spasms [None]
  - Flatulence [None]
  - Impaired quality of life [None]
  - Weight decreased [None]
  - Vomiting [None]
  - Asthenia [None]
  - Drug intolerance [None]

NARRATIVE: CASE EVENT DATE: 20200902
